FAERS Safety Report 11376986 (Version 2)
Quarter: 2015Q3

REPORT INFORMATION
  Report Type: Spontaneous
  Country: US (occurrence: US)
  Receive Date: 20150813
  Receipt Date: 20150904
  Transmission Date: 20151125
  Serious: Yes (Hospitalization, Other)
  Sender: FDA-Public Use
  Company Number: US-PRINSTON PHARMACEUTICAL INC.-2015PRN00057

PATIENT
  Age: 62 Year
  Sex: Female
  Weight: 68.93 kg

DRUGS (1)
  1. BENAZEPRIL [Suspect]
     Active Substance: BENAZEPRIL HYDROCHLORIDE
     Indication: HYPERTENSION
     Dosage: UNK, 1X/DAY
     Route: 048
     Dates: end: 201501

REACTIONS (12)
  - Coccidioidomycosis [Unknown]
  - Aspergillus infection [Unknown]
  - Urticaria [Recovered/Resolved]
  - Pneumonia cryptococcal [Recovered/Resolved with Sequelae]
  - Pulmonary hilum mass [Recovered/Resolved with Sequelae]
  - Swollen tongue [Unknown]
  - Nasopharyngitis [Unknown]
  - Hypersensitivity [Unknown]
  - Hypoaesthesia [Recovered/Resolved]
  - Paraesthesia oral [Unknown]
  - Dental implantation [Unknown]
  - Tooth infection [Unknown]

NARRATIVE: CASE EVENT DATE: 200811
